FAERS Safety Report 9263864 (Version 1)
Quarter: 2013Q2

REPORT INFORMATION
  Report Type: Spontaneous
  Country: US (occurrence: US)
  Receive Date: 20130430
  Receipt Date: 20130430
  Transmission Date: 20140414
  Serious: No
  Sender: FDA-Public Use
  Company Number: US-PFIZER INC-2013131370

PATIENT
  Sex: Female

DRUGS (1)
  1. GABAPENTIN [Suspect]
     Indication: TREMOR
     Dosage: UNK

REACTIONS (3)
  - Off label use [Unknown]
  - Tremor [Unknown]
  - Fibromyalgia [Unknown]
